FAERS Safety Report 14225315 (Version 1)
Quarter: 2017Q4

REPORT INFORMATION
  Report Type: Spontaneous
  Country: RU (occurrence: RU)
  Receive Date: 20171127
  Receipt Date: 20171127
  Transmission Date: 20180321
  Serious: Yes (Other)
  Sender: FDA-Public Use
  Company Number: RU-VALIDUS PHARMACEUTICALS LLC-RU-2017VAL001559

PATIENT
  Age: 65 Year
  Sex: Female

DRUGS (3)
  1. TRENTAL [Suspect]
     Active Substance: PENTOXIFYLLINE
     Indication: CEREBROVASCULAR DISORDER
     Dosage: 400 MG, BID
     Route: 048
  2. INSULIN [Concomitant]
     Active Substance: INSULIN NOS
     Indication: PRODUCT USED FOR UNKNOWN INDICATION
     Dosage: UNK
  3. CONCOR [Concomitant]
     Active Substance: BISOPROLOL FUMARATE
     Indication: PRODUCT USED FOR UNKNOWN INDICATION
     Dosage: UNK

REACTIONS (2)
  - Retinal oedema [Unknown]
  - Visual impairment [Unknown]

NARRATIVE: CASE EVENT DATE: 20171114
